FAERS Safety Report 4507814-8 (Version None)
Quarter: 2004Q4

REPORT INFORMATION
  Report Type: 
  Country: None (occurrence: None)
  Receive Date: 20041123
  Receipt Date: 20041106
  Transmission Date: 20050328
  Serious: Yes (Hospitalization, Other)
  Sender: FDA-Public Use
  Company Number: US-AMGEN-KDL098769

PATIENT
  Sex: Male

DRUGS (4)
  1. ENBREL [Suspect]
     Indication: RHEUMATOID ARTHRITIS
     Route: 058
     Dates: start: 19981101, end: 20031201
  2. METHOTREXATE [Concomitant]
     Route: 058
  3. TOPROL-XL [Concomitant]
  4. COUMADIN [Concomitant]

REACTIONS (4)
  - ATRIAL FIBRILLATION [None]
  - PNEUMONIA [None]
  - RESPIRATORY FAILURE [None]
  - SEPSIS [None]
